FAERS Safety Report 24975015 (Version 1)
Quarter: 2025Q1

REPORT INFORMATION
  Report Type: Spontaneous
  Country: PT (occurrence: PT)
  Receive Date: 20250217
  Receipt Date: 20250217
  Transmission Date: 20250408
  Serious: Yes (Disabling)
  Sender: ABBVIE
  Company Number: PT-PFIZER INC-PV202500015146

PATIENT
  Age: 32 Year
  Sex: Female

DRUGS (2)
  1. DEXAMETHASONE [Interacting]
     Active Substance: DEXAMETHASONE
     Indication: Product used for unknown indication
     Route: 065
  2. TUCATINIB [Interacting]
     Active Substance: TUCATINIB
     Indication: Metastases to central nervous system
     Route: 065
     Dates: start: 202412

REACTIONS (2)
  - Drug interaction [Recovering/Resolving]
  - Myopathy [Recovering/Resolving]
